FAERS Safety Report 7976467-9 (Version None)
Quarter: 2011Q4

REPORT INFORMATION
  Report Type: 
  Country: None (occurrence: None)
  Receive Date: 20111213
  Receipt Date: 20111024
  Transmission Date: 20120403
  Serious: Yes (Hospitalization)
  Sender: FDA-Public Use
  Company Number: US-AMGEN-USASP2011055171

PATIENT
  Sex: Male
  Weight: 86.168 kg

DRUGS (4)
  1. ENBREL [Suspect]
     Indication: PRODUCT USED FOR UNKNOWN INDICATION
     Dosage: UNK
  2. HUMIRA [Suspect]
     Indication: PSORIATIC ARTHROPATHY
     Dosage: 40 MG, Q2WK
     Route: 058
     Dates: start: 20080101, end: 20110101
  3. REMICADE [Concomitant]
     Dosage: UNK
  4. HUMIRA [Suspect]
     Dosage: 40 MG, QWK
     Route: 058
     Dates: start: 20110701

REACTIONS (4)
  - MUSCULOSKELETAL PAIN [None]
  - THERAPEUTIC RESPONSE DECREASED [None]
  - PAIN IN EXTREMITY [None]
  - PERIRECTAL ABSCESS [None]
